FAERS Safety Report 5741955-2 (Version None)
Quarter: 2008Q2

REPORT INFORMATION
  Report Type: 
  Country: None (occurrence: None)
  Receive Date: 20080519
  Receipt Date: 20080509
  Transmission Date: 20081010
  Serious: Yes (Hospitalization, Other)
  Sender: FDA-Public Use
  Company Number: US-ELI_LILLY_AND_COMPANY-US200803002984

PATIENT
  Sex: Male
  Weight: 144.22 kg

DRUGS (1)
  1. ZYPREXA [Suspect]
     Indication: BIPOLAR I DISORDER
     Dates: start: 19980101, end: 20040101

REACTIONS (2)
  - DIABETES MELLITUS [None]
  - VASCULAR GRAFT [None]
